FAERS Safety Report 8110973 (Version 3)
Quarter: 2012Q4

REPORT INFORMATION
  Report Type: Report from Study
  Country: JP (occurrence: JP)
  Receive Date: 20110829
  Receipt Date: 20121226
  Transmission Date: 20130627
  Serious: Yes (Hospitalization, Other)
  Sender: FDA-Public Use
  Company Number: JP-ROCHE-793631

PATIENT
  Age: 64 Year
  Sex: Female
  Weight: 57 kg

DRUGS (16)
  1. TOCILIZUMAB [Suspect]
     Indication: RHEUMATOID ARTHRITIS
     Route: 041
     Dates: start: 20081030, end: 20090423
  2. TOCILIZUMAB [Suspect]
     Route: 041
     Dates: start: 20090519, end: 20090519
  3. TOCILIZUMAB [Suspect]
     Route: 041
     Dates: start: 20090804, end: 20090804
  4. TOCILIZUMAB [Suspect]
     Route: 041
     Dates: start: 20090910, end: 20090910
  5. TOCILIZUMAB [Suspect]
     Route: 041
     Dates: start: 20091015, end: 20100427
  6. TOCILIZUMAB [Suspect]
     Route: 041
     Dates: start: 20100603, end: 20101124
  7. TOCILIZUMAB [Suspect]
     Route: 041
     Dates: start: 20090625, end: 20090625
  8. TOCILIZUMAB [Suspect]
     Route: 041
     Dates: start: 20110105, end: 20110105
  9. TOCILIZUMAB [Suspect]
     Route: 042
     Dates: start: 20110311, end: 20110311
  10. PREDONINE [Concomitant]
     Indication: RHEUMATOID ARTHRITIS
     Route: 048
     Dates: start: 20081015, end: 20090323
  11. PREDONINE [Concomitant]
     Route: 048
     Dates: start: 20090324, end: 20090423
  12. RHEUMATREX [Concomitant]
     Indication: RHEUMATOID ARTHRITIS
     Route: 048
     Dates: start: 20051130, end: 2010
  13. RHEUMATREX [Concomitant]
     Dosage: 4-6mg
     Route: 048
  14. URSO [Concomitant]
     Indication: BILIARY CIRRHOSIS PRIMARY
     Route: 048
     Dates: start: 20101222, end: 20111029
  15. GASLON N [Concomitant]
     Indication: PROPHYLAXIS
     Route: 048
  16. LOXONIN [Concomitant]
     Indication: RHEUMATOID ARTHRITIS
     Dosage: POR
     Route: 048

REACTIONS (2)
  - Extradural haematoma [Unknown]
  - Biliary cirrhosis primary [Recovered/Resolved]
